FAERS Safety Report 4305870-3 (Version None)
Quarter: 2004Q1

REPORT INFORMATION
  Report Type: 
  Country: None (occurrence: None)
  Receive Date: 20040225
  Receipt Date: 20040211
  Transmission Date: 20041129
  Serious: No
  Sender: FDA-Public Use
  Company Number: 2004-113011-NL

PATIENT
  Age: 43 Year
  Sex: Female

DRUGS (8)
  1. MIRTAZAPINE [Suspect]
     Indication: DEPRESSION
     Dosage: 30 MG QD ORAL
     Route: 048
     Dates: start: 20031130, end: 20031212
  2. MIRTAZAPINE [Suspect]
     Indication: FIBROMYALGIA
     Dosage: 30 MG QD ORAL
     Route: 048
     Dates: start: 20031130, end: 20031212
  3. MIRTAZAPINE [Suspect]
     Indication: INSOMNIA
     Dosage: 30 MG QD ORAL
     Route: 048
     Dates: start: 20031130, end: 20031212
  4. ACYCLOVIR [Suspect]
     Indication: RESPIRATORY SYNCYTIAL VIRUS INFECTION
     Dosage: 200 MG TID ORAL
     Route: 048
     Dates: start: 20031201
  5. MEFENAMIC ACID [Suspect]
     Indication: FIBROMYALGIA
     Dosage: DF
     Dates: start: 20030101
  6. MEFENAMIC ACID [Suspect]
     Indication: PAIN
     Dosage: DF
     Dates: start: 20030101
  7. AMITRIPTYLINE HCL [Concomitant]
  8. ZOPICLONE [Concomitant]

REACTIONS (5)
  - CHEST PAIN [None]
  - DYSPNOEA [None]
  - ORTHOPNOEA [None]
  - PALPITATIONS [None]
  - PITTING OEDEMA [None]
